FAERS Safety Report 8484884-6 (Version None)
Quarter: 2012Q3

REPORT INFORMATION
  Report Type: 
  Country: None (occurrence: None)
  Receive Date: 20120703
  Receipt Date: 20120620
  Transmission Date: 20120928
  Serious: Yes (Disabling, Other)
  Sender: FDA-Public Use
  Company Number: BD-ASTELLAS-2012US003394

PATIENT
  Age: 26 Year
  Sex: Female
  Weight: 41 kg

DRUGS (6)
  1. AMBISOME [Suspect]
     Dosage: UNK
     Route: 065
  2. PLUMPYNUT [Concomitant]
     Indication: PRODUCT USED FOR UNKNOWN INDICATION
     Dosage: UNK
     Route: 065
     Dates: start: 20110111, end: 20110121
  3. AMBISOME [Suspect]
     Indication: VISCERAL LEISHMANIASIS
     Dosage: 15 MG/KG, UNKNOWN/D
     Route: 065
     Dates: start: 20110111
  4. ALBENDAZOLE [Concomitant]
     Indication: PRODUCT USED FOR UNKNOWN INDICATION
     Dosage: UNK
     Route: 065
     Dates: start: 20110111
  5. ACETAMINOPHEN [Concomitant]
     Indication: PRODUCT USED FOR UNKNOWN INDICATION
     Dosage: UNK
     Route: 065
     Dates: start: 20110111
  6. CALCIUM [Concomitant]
     Indication: PRODUCT USED FOR UNKNOWN INDICATION
     Dosage: UNK
     Route: 065

REACTIONS (1)
  - MYOPATHY TOXIC [None]
